FAERS Safety Report 6142515-4 (Version None)
Quarter: 2009Q2

REPORT INFORMATION
  Report Type: 
  Country: None (occurrence: None)
  Receive Date: 20090403
  Receipt Date: 20090323
  Transmission Date: 20091009
  Serious: Yes (Death)
  Sender: FDA-Public Use
  Company Number: GB-ABBOTT-09P-167-0563885-00

PATIENT
  Sex: Male

DRUGS (5)
  1. WARFARIN SODIUM [Suspect]
     Indication: CEREBRAL ARTERY EMBOLISM
     Dosage: NOT REPORTED
  2. CRANBERRY JUICE [Interacting]
     Indication: DRUG USE FOR UNKNOWN INDICATION
     Dosage: 300-400 ML PER DAY
  3. PHENYTOIN [Concomitant]
     Indication: CEREBRAL ARTERY EMBOLISM
     Dosage: NOT REPORTED
  4. DIGOXIN [Concomitant]
     Indication: CEREBRAL ARTERY EMBOLISM
     Dosage: NOT REPORTED
  5. CEPHALEXIN [Concomitant]
     Indication: LOWER RESPIRATORY TRACT INFECTION
     Dosage: NOT REPORTED

REACTIONS (3)
  - DRUG INTERACTION [None]
  - GASTROINTESTINAL HAEMORRHAGE [None]
  - PERICARDIAL HAEMORRHAGE [None]
